FAERS Safety Report 9360420 (Version 1)
Quarter: 2013Q2

REPORT INFORMATION
  Report Type: Other
  Country: US (occurrence: US)
  Receive Date: 20130621
  Receipt Date: 20130621
  Transmission Date: 20140414
  Serious: Yes (Hospitalization)
  Sender: FDA-Public Use
  Company Number: US-LUPIN PHARMACEUTICALS INC.-2013-01281

PATIENT
  Age: 73 Year
  Sex: Female

DRUGS (4)
  1. SERTRALINE [Suspect]
     Indication: DEPRESSION
     Route: 065
  2. PROCHLORPERAZINE [Interacting]
     Indication: NAUSEA
     Route: 065
  3. PROCHLORPERAZINE [Interacting]
     Indication: VOMITING
  4. IFOSFAMIDE [Concomitant]
     Indication: PRODUCT USED FOR UNKNOWN INDICATION
     Route: 065

REACTIONS (2)
  - Drug interaction [Recovered/Resolved]
  - Serotonin syndrome [Recovered/Resolved]
